FAERS Safety Report 13817799 (Version 1)
Quarter: 2017Q3

REPORT INFORMATION
  Report Type: Spontaneous
  Country: US (occurrence: US)
  Receive Date: 20170731
  Receipt Date: 20170731
  Transmission Date: 20171127
  Serious: Yes (Other)
  Sender: FDA-Public Use
  Company Number: PHHY2017US109786

PATIENT
  Age: 58 Year
  Sex: Female
  Weight: 56.24 kg

DRUGS (8)
  1. CYCLOGYL [Concomitant]
     Active Substance: CYCLOPENTOLATE HYDROCHLORIDE
     Indication: PREOPERATIVE CARE
     Dosage: UNK UNK, TID
     Route: 065
  2. CYCLOGYL [Concomitant]
     Active Substance: CYCLOPENTOLATE HYDROCHLORIDE
     Indication: POSTOPERATIVE CARE
  3. BETADINE [Suspect]
     Active Substance: POVIDONE-IODINE
     Indication: INTRAOPERATIVE CARE
     Dosage: UNK UNK, ONCE/SINGLE
     Route: 047
  4. OFLOXACIN. [Concomitant]
     Active Substance: OFLOXACIN
     Indication: PREOPERATIVE CARE
     Dosage: UNK UNK, QID
     Route: 065
  5. OFLOXACIN. [Concomitant]
     Active Substance: OFLOXACIN
     Indication: POSTOPERATIVE CARE
  6. PHENYLEPHRINE [Concomitant]
     Active Substance: PHENYLEPHRINE\PHENYLEPHRINE HYDROCHLORIDE
     Indication: PREOPERATIVE CARE
     Route: 065
  7. BSS PLUS [Suspect]
     Active Substance: CALCIUM CHLORIDE\DEXTROSE\MAGNESIUM CHLORIDE\OXIGLUTATIONE\POTASSIUM CHLORIDE\SODIUM BICARBONATE\SODIUM CHLORIDE\SODIUM PHOSPHATE\SODIUM PHOSPHATE, DIBASIC
     Indication: EYE IRRIGATION
     Dosage: UNK UNK, ONCE/SINGLE
     Route: 031
  8. PHENYLEPHRINE [Concomitant]
     Active Substance: PHENYLEPHRINE\PHENYLEPHRINE HYDROCHLORIDE
     Indication: POSTOPERATIVE CARE

REACTIONS (4)
  - Endophthalmitis [Not Recovered/Not Resolved]
  - Visual impairment [Not Recovered/Not Resolved]
  - Vitritis [Not Recovered/Not Resolved]
  - Hypopyon [Not Recovered/Not Resolved]

NARRATIVE: CASE EVENT DATE: 20170701
